FAERS Safety Report 5200897-1 (Version None)
Quarter: 2007Q1

REPORT INFORMATION
  Report Type: 
  Country: None (occurrence: None)
  Receive Date: 20070108
  Receipt Date: 20070102
  Transmission Date: 20070707
  Serious: Yes (Hospitalization)
  Sender: FDA-Public Use
  Company Number: CA-AVENTIS-200710076GDDC

PATIENT
  Age: 67 Year
  Sex: Male

DRUGS (2)
  1. FLUOROURACIL [Suspect]
     Indication: RECTAL CANCER
     Dosage: DOSE: 1575 MG/M2  PER WEEK
     Route: 042
  2. RADIOTHERAPY [Suspect]
     Indication: RECTAL CANCER
     Dosage: DOSE: 18 GY

REACTIONS (2)
  - DEHYDRATION [None]
  - PROCTOCOLITIS [None]
